FAERS Safety Report 7282162-4 (Version None)
Quarter: 2011Q1

REPORT INFORMATION
  Report Type: 
  Country: None (occurrence: None)
  Receive Date: 20110208
  Receipt Date: 20110202
  Transmission Date: 20110831
  Serious: Yes (Death, Hospitalization)
  Sender: FDA-Public Use
  Company Number: BR-BRISTOL-MYERS SQUIBB COMPANY-15465974

PATIENT
  Age: 63 Year
  Sex: Male
  Weight: 61 kg

DRUGS (6)
  1. VITAMIN B-12 [Concomitant]
     Indication: PREMEDICATION
  2. NECITUMUMAB [Suspect]
     Indication: NON-SMALL CELL LUNG CANCER
     Dosage: NO OF CYCLES:4; 25-AUG-2010 TO 03-NOV-2010(71 DAYS); INTERRUPTED ON 24-NOV-2010
     Route: 065
     Dates: start: 20100825
  3. DEXAMETHASONE [Concomitant]
     Indication: PREMEDICATION
  4. FOLIC ACID [Concomitant]
     Indication: PREMEDICATION
  5. CISPLATIN [Suspect]
     Indication: NON-SMALL CELL LUNG CANCER
     Dosage: NO OF CYCLES:4; 25-AUG-2010 TO 03-NOV-2010(71 DAYS); INTERRUPTED ON 24-NOV-2010
     Route: 065
     Dates: start: 20100825
  6. ALIMTA [Suspect]
     Indication: NON-SMALL CELL LUNG CANCER
     Dosage: NO OF CYCLES:4; 25-AUG-2010 TO 03-NOV-2010(71 DAYS); INTERRUPTED ON 24-NOV-2010
     Route: 065
     Dates: start: 20100825

REACTIONS (2)
  - RESPIRATORY FAILURE [None]
  - ANAEMIA [None]
